FAERS Safety Report 8573878-8 (Version None)
Quarter: 2012Q3

REPORT INFORMATION
  Report Type: 
  Country: None (occurrence: None)
  Receive Date: 20120806
  Receipt Date: 20120307
  Transmission Date: 20120928
  Serious: No
  Sender: FDA-Public Use
  Company Number: US-GLAXOSMITHKLINE-A0968985A

PATIENT
  Age: 81 Year
  Sex: Male

DRUGS (6)
  1. FLUTICASONE PROPIONATE [Suspect]
     Indication: CHRONIC OBSTRUCTIVE PULMONARY DISEASE
     Dosage: 1PUFF TWICE PER DAY
     Route: 055
  2. K+ [Concomitant]
  3. CIPROFLOXACIN HCL [Concomitant]
  4. SINGULAIR [Concomitant]
  5. WATER PILL [Concomitant]
  6. BLOOD THINNER [Concomitant]

REACTIONS (3)
  - DENTAL CARIES [None]
  - TOOTH DISORDER [None]
  - DEVICE FAILURE [None]
